FAERS Safety Report 9361635 (Version 1)
Quarter: 2013Q2

REPORT INFORMATION
  Report Type: Spontaneous
  Country: US (occurrence: US)
  Receive Date: 20130621
  Receipt Date: 20130621
  Transmission Date: 20140414
  Serious: No
  Sender: FDA-Public Use
  Company Number: US-009507513-1306USA009209

PATIENT
  Age: 18 Year
  Sex: Female
  Weight: 52.15 kg

DRUGS (3)
  1. NUVARING [Suspect]
     Dosage: 1 RING/ EVERY 28 DAYS
     Route: 067
     Dates: start: 201206
  2. PROAIR (ALBUTEROL SULFATE) [Concomitant]
     Dosage: UNK
  3. LEVSIN [Concomitant]
     Dosage: UNK

REACTIONS (1)
  - Menstruation irregular [Not Recovered/Not Resolved]
